FAERS Safety Report 8825725 (Version 6)
Quarter: 2014Q1

REPORT INFORMATION
  Report Type: Spontaneous
  Country: US (occurrence: US)
  Receive Date: 20121004
  Receipt Date: 20140207
  Transmission Date: 20141002
  Serious: Yes (Hospitalization, Disabling, Other)
  Sender: FDA-Public Use
  Company Number: US-009507513-1205USA00967

PATIENT
  Sex: Female
  Weight: 95.24 kg

DRUGS (5)
  1. FOSAMAX [Suspect]
     Indication: OSTEOPOROSIS
     Dosage: UNK QW
     Route: 048
     Dates: start: 1995, end: 2009
  2. FOSAMAX [Suspect]
     Dosage: UNK QD
     Route: 048
     Dates: start: 1995, end: 2009
  3. ALENDRONATE SODIUM [Suspect]
     Route: 048
  4. VITAMIN D (UNSPECIFIED) [Concomitant]
     Dosage: UNK, QD
     Dates: start: 2000
  5. PREDNISONE [Concomitant]
     Indication: SARCOIDOSIS
     Dosage: UNK
     Dates: start: 1995

REACTIONS (49)
  - Femur fracture [Unknown]
  - Femoral neck fracture [Not Recovered/Not Resolved]
  - Cerebrovascular accident [Unknown]
  - Eye operation [Unknown]
  - Renal failure chronic [Not Recovered/Not Resolved]
  - Open reduction of fracture [Unknown]
  - Presyncope [Unknown]
  - Loss of consciousness [Unknown]
  - Fracture nonunion [Unknown]
  - Internal fixation of fracture [Unknown]
  - Intramedullary rod insertion [Unknown]
  - Open reduction of fracture [Unknown]
  - Femur fracture [Unknown]
  - Anaemia postoperative [Unknown]
  - Pain [Unknown]
  - Hypotension [Unknown]
  - Vomiting [Unknown]
  - Nausea [Unknown]
  - Fall [Unknown]
  - Hypertension [Not Recovered/Not Resolved]
  - Hyperlipidaemia [Not Recovered/Not Resolved]
  - Diabetes mellitus [Not Recovered/Not Resolved]
  - Pneumonia [Not Recovered/Not Resolved]
  - Eye disorder [Unknown]
  - Osteoarthritis [Not Recovered/Not Resolved]
  - Tachycardia [Unknown]
  - Weight decreased [Unknown]
  - Nocturia [Unknown]
  - Decreased appetite [Unknown]
  - Post-traumatic stress disorder [Unknown]
  - Neuralgia [Unknown]
  - Osteoarthritis [Unknown]
  - Rotator cuff syndrome [Unknown]
  - Ligament sprain [Unknown]
  - Lumbar radiculopathy [Unknown]
  - Spinal column stenosis [Unknown]
  - Joint range of motion decreased [Not Recovered/Not Resolved]
  - Fall [Unknown]
  - Paraesthesia [Unknown]
  - Liver function test abnormal [Unknown]
  - Hepatitis [Unknown]
  - Hypothyroidism [Unknown]
  - Musculoskeletal chest pain [Unknown]
  - Oedema peripheral [Unknown]
  - Headache [Not Recovered/Not Resolved]
  - Gastritis [Unknown]
  - Gastrooesophageal reflux disease [Unknown]
  - Oesophagitis [Unknown]
  - Dysphagia [Unknown]
